FAERS Safety Report 6212642-1 (Version None)
Quarter: 2009Q2

REPORT INFORMATION
  Report Type: 
  Country: None (occurrence: None)
  Receive Date: 20090603
  Receipt Date: 20090526
  Transmission Date: 20091009
  Serious: Yes (Hospitalization, Other)
  Sender: FDA-Public Use
  Company Number: US-AMGEN-US348785

PATIENT
  Sex: Male
  Weight: 3.2 kg

DRUGS (14)
  1. ENBREL [Suspect]
     Indication: RHEUMATOID ARTHRITIS
     Route: 064
  2. LOVENOX [Concomitant]
     Route: 064
  3. PEPCID [Concomitant]
     Route: 048
  4. ASPIRIN [Concomitant]
     Route: 064
  5. FOLIC ACID [Concomitant]
     Route: 064
  6. ASCORBIC ACID [Concomitant]
     Route: 064
  7. CALCIUM [Concomitant]
     Route: 064
  8. VITAMIN B COMPLEX CAP [Concomitant]
     Route: 064
  9. VITAMIN TAB [Concomitant]
     Route: 064
  10. CLARITIN [Concomitant]
     Route: 064
  11. FLONASE [Concomitant]
     Route: 064
  12. ADVAIR HFA [Concomitant]
     Route: 064
  13. ALBUTEROL [Concomitant]
     Route: 064
  14. CLINDAMYCIN [Concomitant]
     Route: 064

REACTIONS (6)
  - BLADDER DIVERTICULUM [None]
  - CLOSTRIDIAL INFECTION [None]
  - REFLUX NEPHROPATHY [None]
  - RENAL HYPERTROPHY [None]
  - RESPIRATORY SYNCYTIAL VIRUS INFECTION [None]
  - URINARY TRACT INFECTION [None]
